FAERS Safety Report 25825923 (Version 1)
Quarter: 2025Q3

REPORT INFORMATION
  Report Type: Report from Study
  Country: US (occurrence: US)
  Receive Date: 20250919
  Receipt Date: 20250919
  Transmission Date: 20251021
  Serious: Yes (Other)
  Sender: MALLINCKRODT
  Company Number: US-MALLINCKRODT-MNK202505696

PATIENT
  Age: 53 Year
  Sex: Male
  Weight: 350 kg

DRUGS (1)
  1. CORTICOTROPIN [Suspect]
     Active Substance: CORTICOTROPIN
     Indication: Uveitis
     Route: 058
     Dates: start: 20250903

REACTIONS (3)
  - Eye operation [Unknown]
  - Injection site haemorrhage [Unknown]
  - Injection site mass [Unknown]

NARRATIVE: CASE EVENT DATE: 20250907
